FAERS Safety Report 6071241-5 (Version None)
Quarter: 2009Q1

REPORT INFORMATION
  Report Type: 
  Country: None (occurrence: None)
  Receive Date: 20090209
  Receipt Date: 20090202
  Transmission Date: 20090719
  Serious: Yes (Hospitalization)
  Sender: FDA-Public Use
  Company Number: US-CELGENEUS-163-20785-09010056

PATIENT
  Sex: Male

DRUGS (1)
  1. THALOMID [Suspect]
     Indication: MULTIPLE MYELOMA
     Dosage: 50-100 MG
     Route: 048
     Dates: start: 20081023

REACTIONS (3)
  - ANOREXIA [None]
  - DEHYDRATION [None]
  - FUNGAL INFECTION [None]
